FAERS Safety Report 5246373-1 (Version None)
Quarter: 2007Q1

REPORT INFORMATION
  Report Type: 
  Country: None (occurrence: None)
  Receive Date: 20070222
  Receipt Date: 20070222
  Transmission Date: 20070707
  Serious: No
  Sender: FDA-Public Use
  Company Number: None

PATIENT
  Age: 38 Year
  Sex: Male
  Weight: 76.2043 kg

DRUGS (1)
  1. ZICAM [Suspect]
     Indication: NASOPHARYNGITIS
     Dosage: ONE SQUIRT EACH NOSTRIL
     Dates: start: 20070115, end: 20070115

REACTIONS (8)
  - AGEUSIA [None]
  - ANOSMIA [None]
  - HEADACHE [None]
  - HYPOAESTHESIA [None]
  - LACRIMATION INCREASED [None]
  - NASAL DISCOMFORT [None]
  - NO THERAPEUTIC RESPONSE [None]
  - RHINALGIA [None]
